FAERS Safety Report 7986904-1 (Version None)
Quarter: 2011Q4

REPORT INFORMATION
  Report Type: 
  Country: None (occurrence: None)
  Receive Date: 20111216
  Receipt Date: 20110307
  Transmission Date: 20120403
  Serious: No
  Sender: FDA-Public Use
  Company Number: US-BRISTOL-MYERS SQUIBB COMPANY-15592082

PATIENT
  Age: 81 Year
  Sex: Female
  Weight: 60 kg

DRUGS (6)
  1. WELLBUTRIN [Concomitant]
  2. LEVOTHYROXINE SODIUM [Concomitant]
  3. ABILIFY [Suspect]
     Indication: DEPRESSION
     Dosage: INITIALLY 5 MG,THEN DECREASED TO 2 MG AND 1 MG,THEN INCREASED TO 2 MG.AT BED TIME
  4. XALATAN [Concomitant]
  5. XANAX [Concomitant]
  6. MULTI-VITAMINS [Concomitant]

REACTIONS (1)
  - TREMOR [None]
